FAERS Safety Report 6796146-3 (Version None)
Quarter: 2010Q2

REPORT INFORMATION
  Report Type: 
  Country: None (occurrence: None)
  Receive Date: 20100625
  Receipt Date: 20100622
  Transmission Date: 20101027
  Serious: Yes (Death, Life-Threatening, Hospitalization, Other)
  Sender: FDA-Public Use
  Company Number: US-PFIZER INC-2010077754

PATIENT
  Sex: Female

DRUGS (24)
  1. SILDENAFIL CITRATE [Suspect]
     Indication: PULMONARY ARTERIAL HYPERTENSION
     Dosage: 60 MG, UNK
     Route: 065
     Dates: start: 20061227, end: 20100322
  2. SILDENAFIL CITRATE [Suspect]
     Dosage: 90 MG, UNK
     Route: 065
     Dates: start: 20100322, end: 20100101
  3. BOSENTAN [Suspect]
     Indication: PULMONARY ARTERIAL HYPERTENSION
     Dosage: UNK
     Route: 065
     Dates: start: 20070501, end: 20070529
  4. BOSENTAN [Suspect]
     Dosage: UNK
     Route: 065
     Dates: start: 20070524, end: 20080507
  5. BOSENTAN [Suspect]
     Dosage: UNK
     Route: 065
     Dates: start: 20080507, end: 20081111
  6. BOSENTAN [Suspect]
     Dosage: UNK
     Route: 065
     Dates: start: 20081111, end: 20081205
  7. BOSENTAN [Suspect]
     Dosage: UNK
     Route: 065
     Dates: start: 20081205, end: 20090106
  8. BOSENTAN [Suspect]
     Dosage: UNK
     Route: 065
     Dates: start: 20090106
  9. ILOPROST [Suspect]
     Indication: PULMONARY ARTERIAL HYPERTENSION
     Dosage: UNK
     Route: 055
     Dates: start: 20090701
  10. POTASSIUM [Concomitant]
     Route: 048
  11. LEVOTHYROXINE [Concomitant]
     Route: 048
  12. METOPROLOL [Concomitant]
     Route: 048
  13. VERAPAMIL [Concomitant]
     Route: 048
  14. PAROXETINE [Concomitant]
     Route: 048
  15. ACETYLSALICYLIC ACID [Concomitant]
     Route: 048
  16. LORAZEPAM [Concomitant]
     Route: 048
  17. WARFARIN [Concomitant]
     Route: 048
  18. ACETAMINOPHEN [Concomitant]
     Route: 048
  19. DIGOXIN [Concomitant]
     Route: 048
  20. ZAROXOLYN [Concomitant]
     Route: 048
  21. ALLOPURINOL [Concomitant]
     Route: 048
  22. SPIRONOLACTONE [Concomitant]
     Route: 048
  23. FUROSEMIDE [Concomitant]
     Route: 048
  24. OMEPRAZOLE [Concomitant]
     Route: 048

REACTIONS (15)
  - ACCIDENT [None]
  - CARDIAC ARREST [None]
  - ELECTROMECHANICAL DISSOCIATION [None]
  - EXCORIATION [None]
  - FACIAL BONES FRACTURE [None]
  - FALL [None]
  - HYPOTENSION [None]
  - HYPOTHERMIA [None]
  - MOUTH INJURY [None]
  - PULMONARY ARTERIAL HYPERTENSION [None]
  - RESPIRATORY ARREST [None]
  - RIGHT VENTRICULAR FAILURE [None]
  - SINUSITIS [None]
  - TRICUSPID VALVE INCOMPETENCE [None]
  - UNRESPONSIVE TO STIMULI [None]
